FAERS Safety Report 26153775 (Version 1)
Quarter: 2025Q4

REPORT INFORMATION
  Report Type: Report from Study
  Country: GB (occurrence: GB)
  Receive Date: 20251214
  Receipt Date: 20251214
  Transmission Date: 20260117
  Serious: Yes (Hospitalization, Other)
  Sender: CELLTRION
  Company Number: GB-CELLTRION INC.-2025GB044536

PATIENT

DRUGS (2)
  1. ADALIMUMAB-AATY [Suspect]
     Active Substance: ADALIMUMAB-AATY
     Indication: Psoriasis
     Dosage: YUFLYMA (ADALIMUMAB) 40MG PEN PK2; ONGOING (SUSPENDED)
     Route: 058
     Dates: start: 202408
  2. ADALIMUMAB-AATY [Suspect]
     Active Substance: ADALIMUMAB-AATY

REACTIONS (3)
  - Nephrolithiasis [Recovering/Resolving]
  - Nasopharyngitis [Recovering/Resolving]
  - Intentional dose omission [Unknown]
